FAERS Safety Report 7994125 (Version 13)
Quarter: 2015Q4

REPORT INFORMATION
  Report Type: Spontaneous
  Country: CA (occurrence: CA)
  Receive Date: 20110616
  Receipt Date: 20151222
  Transmission Date: 20160305
  Serious: Yes (Hospitalization)
  Sender: FDA-Public Use
  Company Number: CA-ROCHE-GNE319969

PATIENT
  Age: 72 Year
  Sex: Female

DRUGS (9)
  1. UNIPHYL [Concomitant]
     Active Substance: THEOPHYLLINE ANHYDROUS
  2. XOLAIR [Suspect]
     Active Substance: OMALIZUMAB
     Indication: ASTHMA
     Dosage: 300 MG, 1/MONTH
     Route: 058
     Dates: start: 20061011
  3. ADVAIR HFA [Concomitant]
     Active Substance: FLUTICASONE PROPIONATE\SALMETEROL XINAFOATE
  4. CIPROFLOXACIN. [Concomitant]
     Active Substance: CIPROFLOXACIN
     Route: 065
  5. SYMBICORT [Concomitant]
     Active Substance: BUDESONIDE\FORMOTEROL FUMARATE DIHYDRATE
  6. PREDNISONE. [Concomitant]
     Active Substance: PREDNISONE
     Route: 065
  7. SPIRIVA [Concomitant]
     Active Substance: TIOTROPIUM BROMIDE MONOHYDRATE
  8. METRONIDAZOLE. [Concomitant]
     Active Substance: METRONIDAZOLE
     Route: 065
  9. VENTOLIN [Concomitant]
     Active Substance: ALBUTEROL SULFATE

REACTIONS (26)
  - Abscess [Unknown]
  - Weight decreased [Recovering/Resolving]
  - Asthenia [Unknown]
  - Decreased interest [Unknown]
  - Nosocomial infection [Unknown]
  - Eating disorder [Unknown]
  - Social problem [Unknown]
  - Feeling abnormal [Unknown]
  - Decreased appetite [Unknown]
  - Cough [Recovering/Resolving]
  - Lung disorder [Unknown]
  - Malaise [Unknown]
  - General physical condition abnormal [Unknown]
  - Gastroenteritis viral [Unknown]
  - Arthritis [Unknown]
  - Osteoarthritis [Unknown]
  - Diverticulitis [Unknown]
  - Escherichia infection [Unknown]
  - Abdominal discomfort [Unknown]
  - Bone disorder [Unknown]
  - Gait disturbance [Unknown]
  - Wheezing [Unknown]
  - Fear [Unknown]
  - Gastrooesophageal reflux disease [Recovering/Resolving]
  - Chest discomfort [Unknown]
  - Infection [Unknown]

NARRATIVE: CASE EVENT DATE: 20090827
